FAERS Safety Report 17898300 (Version 1)
Quarter: 2020Q2

REPORT INFORMATION
  Report Type: Other
  Country: AU (occurrence: AU)
  Receive Date: 20200616
  Receipt Date: 20200616
  Transmission Date: 20200714
  Serious: Yes (Hospitalization)
  Sender: FDA-Public Use
  Company Number: AU-NUVO PHARMACEUTICALS INC-2085889

PATIENT
  Age: 34 Year
  Sex: Male

DRUGS (1)
  1. PHENTERMINE HYDROCHLORIDE. [Suspect]
     Active Substance: PHENTERMINE HYDROCHLORIDE
     Indication: OBESITY
     Route: 065

REACTIONS (2)
  - Cardiogenic shock [Unknown]
  - Catecholamine crisis [Unknown]
